FAERS Safety Report 24971525 (Version 2)
Quarter: 2025Q2

REPORT INFORMATION
  Report Type: Spontaneous
  Country: CA (occurrence: CA)
  Receive Date: 20250214
  Receipt Date: 20250418
  Transmission Date: 20250717
  Serious: Yes (Other)
  Sender: PFIZER
  Company Number: CA-PFIZER INC-202500034304

PATIENT
  Age: 23 Year
  Sex: Male

DRUGS (2)
  1. ABRILADA [Suspect]
     Active Substance: ADALIMUMAB-AFZB
     Indication: Crohn^s disease
     Dosage: 40 MG, WEEKLY
     Route: 058
     Dates: start: 20230906, end: 2024
  2. ABRILADA [Suspect]
     Active Substance: ADALIMUMAB-AFZB
     Route: 058
     Dates: start: 2024

REACTIONS (1)
  - Pyoderma gangrenosum [Not Recovered/Not Resolved]
